FAERS Safety Report 5924387-3 (Version None)
Quarter: 2008Q4

REPORT INFORMATION
  Report Type: 
  Country: None (occurrence: None)
  Receive Date: 20081020
  Receipt Date: 20081014
  Transmission Date: 20090506
  Serious: Yes (Death)
  Sender: FDA-Public Use
  Company Number: US-ELI_LILLY_AND_COMPANY-US200810003530

PATIENT
  Age: 66 Year
  Sex: Male

DRUGS (1)
  1. BYETTA [Suspect]
     Dosage: UNK, UNK
     Route: 058
     Dates: start: 20080301

REACTIONS (1)
  - PANCREATIC CARCINOMA [None]
